FAERS Safety Report 4855377-X (Version None)
Quarter: 2005Q4

REPORT INFORMATION
  Report Type: 
  Country: None (occurrence: None)
  Receive Date: 20051125
  Receipt Date: 20050908
  Transmission Date: 20060501
  Serious: Yes (Death, Hospitalization)
  Sender: FDA-Public Use
  Company Number: US015975

PATIENT
  Age: 57 Year
  Sex: Male
  Weight: 60.782 kg

DRUGS (2)
  1. TRISENOX [Suspect]
     Indication: MYELOID LEUKAEMIA
     Dosage: 15 MG QD INTRAVENOUS DRIP
     Route: 041
     Dates: start: 20050829
  2. CYTARABINE [Suspect]
     Dosage: 17.5 MG QD SUBCUTANEOUS
     Route: 058
     Dates: start: 20050829

REACTIONS (1)
  - FEBRILE NEUTROPENIA [None]
